FAERS Safety Report 15181001 (Version 1)
Quarter: 2018Q3

REPORT INFORMATION
  Report Type: Spontaneous
  Country: US (occurrence: US)
  Receive Date: 20180623
  Receipt Date: 20180623
  Transmission Date: 20181010
  Serious: Yes (Other)
  Sender: FDA-Public Use
  Company Number: None

PATIENT
  Age: 23 Year
  Sex: Female
  Weight: 79.65 kg

DRUGS (1)
  1. MEDROXYPROGESTERONE INJECTABLE SYRINGE [Suspect]
     Active Substance: MEDROXYPROGESTERONE
     Indication: CONTRACEPTION
     Dates: start: 20170510, end: 20180416

REACTIONS (1)
  - Red blood cell count increased [None]

NARRATIVE: CASE EVENT DATE: 20170601
